FAERS Safety Report 12090747 (Version 2)
Quarter: 2016Q1

REPORT INFORMATION
  Report Type: Spontaneous
  Country: PE (occurrence: PE)
  Receive Date: 20160218
  Receipt Date: 20160224
  Transmission Date: 20160526
  Serious: No
  Sender: FDA-Public Use
  Company Number: PE-SA-2016SA030638

PATIENT
  Age: 36 Year
  Sex: Female

DRUGS (1)
  1. ARAVA [Suspect]
     Active Substance: LEFLUNOMIDE
     Indication: RHEUMATOID ARTHRITIS
     Dosage: START DATE:4 AND A HALF MONTHS AGO?STOP DATE:3 MONTHS AGO
     Route: 048
     Dates: end: 201601

REACTIONS (1)
  - Exposure during pregnancy [Unknown]
